FAERS Safety Report 7371729-0 (Version None)
Quarter: 2011Q1

REPORT INFORMATION
  Report Type: 
  Country: None (occurrence: None)
  Receive Date: 20110324
  Receipt Date: 20110315
  Transmission Date: 20110831
  Serious: Yes (Hospitalization)
  Sender: FDA-Public Use
  Company Number: SE-ENDO PHARMACEUTICALS INC.-PRED20110002

PATIENT
  Sex: Male

DRUGS (4)
  1. TAXOTERE [Suspect]
     Indication: PROSTATE CANCER
     Dosage: 154 MG
     Dates: start: 20101111
  2. PREDNISONE TAB [Suspect]
     Indication: PROSTATE CANCER
     Route: 048
     Dates: start: 20101111
  3. DASATINIB/PLACEBO (CODE NOT BROKEN) [Suspect]
     Indication: PROSTATE CANCER
     Route: 048
     Dates: start: 20101111
  4. MORPHINE [Concomitant]
     Dosage: UNK
     Dates: start: 20110205

REACTIONS (4)
  - DIARRHOEA [None]
  - NAUSEA [None]
  - INFECTION [None]
  - PYREXIA [None]
